FAERS Safety Report 19937377 (Version 2)
Quarter: 2021Q4

REPORT INFORMATION
  Report Type: Spontaneous
  Country: CO (occurrence: CO)
  Receive Date: 20211010
  Receipt Date: 20211116
  Transmission Date: 20220303
  Serious: Yes (Other)
  Sender: FDA-Public Use
  Company Number: CO-PFIZER INC-202101292987

PATIENT
  Age: 58 Year
  Sex: Female

DRUGS (1)
  1. ENBREL [Suspect]
     Active Substance: ETANERCEPT
     Indication: Rheumatoid arthritis
     Dosage: 50 MG EVERY 8 DAYS
     Route: 058
     Dates: start: 2015

REACTIONS (6)
  - Rheumatoid arthritis [Unknown]
  - Drug intolerance [Unknown]
  - Therapeutic product effect decreased [Unknown]
  - Weight decreased [Not Recovered/Not Resolved]
  - Asthenia [Unknown]
  - Off label use [Unknown]
